FAERS Safety Report 19798571 (Version 2)
Quarter: 2021Q3

REPORT INFORMATION
  Report Type: Spontaneous
  Country: JP (occurrence: JP)
  Receive Date: 20210906
  Receipt Date: 20210913
  Transmission Date: 20211014
  Serious: Yes (Other)
  Sender: FDA-Public Use
  Company Number: JP-MALLINCKRODT PHARMACEUTICALS-T202103947

PATIENT
  Age: 47 Year
  Sex: Male

DRUGS (3)
  1. OFIRMEV [Suspect]
     Active Substance: ACETAMINOPHEN
     Indication: ABDOMINAL PAIN
  2. CEFMETAZOLE NA [Suspect]
     Active Substance: CEFMETAZOLE
     Indication: ENTEROCOLITIS BACTERIAL
     Dosage: UNK
     Route: 065
  3. OFIRMEV [Suspect]
     Active Substance: ACETAMINOPHEN
     Indication: ENTEROCOLITIS BACTERIAL
     Dosage: UNK
     Route: 065

REACTIONS (2)
  - Drug reaction with eosinophilia and systemic symptoms [Recovered/Resolved]
  - Medication error [Unknown]
